FAERS Safety Report 5899964-9 (Version None)
Quarter: 2008Q3

REPORT INFORMATION
  Report Type: 
  Country: None (occurrence: None)
  Receive Date: 20080926
  Receipt Date: 20080916
  Transmission Date: 20090109
  Serious: Yes (Hospitalization)
  Sender: FDA-Public Use
  Company Number: B0537302A

PATIENT
  Age: 10 Year
  Sex: Male
  Weight: 46 kg

DRUGS (6)
  1. ZOVIRAX [Suspect]
     Indication: DRUG USE FOR UNKNOWN INDICATION
     Route: 065
     Dates: start: 20080801
  2. CYCLOSPORINE [Suspect]
     Indication: IMMUNOSUPPRESSION
     Route: 065
     Dates: start: 20080731, end: 20080814
  3. PROGRAF [Suspect]
     Indication: IMMUNOSUPPRESSION
     Route: 042
     Dates: start: 20080814
  4. CAPTOPRIL [Suspect]
     Route: 065
     Dates: start: 20080801, end: 20080821
  5. CELLCEPT [Suspect]
     Indication: IMMUNOSUPPRESSION
     Route: 042
     Dates: start: 20080801
  6. CORTICOSTEROID [Concomitant]
     Dosage: 1MGK PER DAY
     Route: 065
     Dates: start: 20080801

REACTIONS (18)
  - ANAEMIA [None]
  - APHASIA [None]
  - BRAIN INJURY [None]
  - BRAIN OEDEMA [None]
  - C-REACTIVE PROTEIN INCREASED [None]
  - CONVULSION [None]
  - DELIRIUM [None]
  - EXTRAPYRAMIDAL DISORDER [None]
  - HEMIPARESIS [None]
  - HYPERTENSION [None]
  - HYPOTONIA [None]
  - LOCKED-IN SYNDROME [None]
  - MOTOR DYSFUNCTION [None]
  - MYDRIASIS [None]
  - NUCLEAR MAGNETIC RESONANCE IMAGING ABNORMAL [None]
  - RENAL FAILURE ACUTE [None]
  - REVERSIBLE POSTERIOR LEUKOENCEPHALOPATHY SYNDROME [None]
  - SENSORIMOTOR DISORDER [None]
